FAERS Safety Report 6862428-X (Version None)
Quarter: 2010Q3

REPORT INFORMATION
  Report Type: 
  Country: None (occurrence: None)
  Receive Date: 20100716
  Receipt Date: 20100706
  Transmission Date: 20110219
  Serious: Yes (Hospitalization)
  Sender: FDA-Public Use
  Company Number: 2010MA000613

PATIENT
  Age: 2 Year
  Sex: Male

DRUGS (1)
  1. FEVERALL [Suspect]
     Dosage: 2400 MG; PO
     Route: 048
     Dates: start: 20100605, end: 20100605

REACTIONS (2)
  - ABDOMINAL PAIN [None]
  - ACCIDENTAL DRUG INTAKE BY CHILD [None]
